FAERS Safety Report 11129471 (Version 2)
Quarter: 2015Q2

REPORT INFORMATION
  Report Type: Spontaneous
  Country: US (occurrence: US)
  Receive Date: 20150521
  Receipt Date: 20150522
  Transmission Date: 20150821
  Serious: Yes (Hospitalization, Other)
  Sender: FDA-Public Use
  Company Number: US-GLENMARK GENERICS (EUROPE) LTD-2015GMK016942

PATIENT
  Age: 16 Year
  Sex: Female

DRUGS (7)
  1. ROPINIROLE. [Suspect]
     Active Substance: ROPINIROLE
     Indication: RESTLESS LEGS SYNDROME
     Dosage: UNK
  2. CLONAZEPAM. [Suspect]
     Active Substance: CLONAZEPAM
     Indication: RESTLESS LEGS SYNDROME
     Dosage: UNK
  3. IRON [Suspect]
     Active Substance: IRON
     Dosage: UNK
     Route: 042
  4. GABAPENTIN. [Suspect]
     Active Substance: GABAPENTIN
     Indication: RESTLESS LEGS SYNDROME
     Dosage: HIGH DOSE
  5. IRON [Suspect]
     Active Substance: IRON
     Indication: RESTLESS LEGS SYNDROME
     Dosage: UNK
     Route: 048
  6. CYMBALTA [Suspect]
     Active Substance: DULOXETINE HYDROCHLORIDE
     Indication: RESTLESS LEGS SYNDROME
     Dosage: UNK
  7. DURAGESIC [Suspect]
     Active Substance: FENTANYL
     Indication: RESTLESS LEGS SYNDROME
     Dosage: UNK

REACTIONS (4)
  - Hypercalcaemia [Unknown]
  - Off label use [Unknown]
  - Serum ferritin increased [Recovering/Resolving]
  - Chronic kidney disease [Unknown]
